FAERS Safety Report 22520277 (Version 1)
Quarter: 2023Q2

REPORT INFORMATION
  Report Type: Spontaneous
  Country: US (occurrence: None)
  Receive Date: 20230603
  Receipt Date: 20230603
  Transmission Date: 20230722
  Serious: Yes (Other)
  Sender: FDA-Public Use
  Company Number: None

PATIENT
  Age: 49 Year
  Sex: Female
  Weight: 63.9 kg

DRUGS (3)
  1. LUPRON [Suspect]
     Active Substance: LEUPROLIDE ACETATE
     Indication: Heavy menstrual bleeding
     Dosage: OTHER QUANTITY : 1 INJECTION(S);?
     Route: 030
     Dates: start: 20230505
  2. LUPRON [Suspect]
     Active Substance: LEUPROLIDE ACETATE
     Indication: Uterine leiomyoma
  3. Oral iron [Concomitant]

REACTIONS (11)
  - Myalgia [None]
  - Arthralgia [None]
  - Pain in extremity [None]
  - Pain in extremity [None]
  - Pain in extremity [None]
  - Neck pain [None]
  - Back pain [None]
  - Dizziness [None]
  - Asthenia [None]
  - Fatigue [None]
  - Injection related reaction [None]

NARRATIVE: CASE EVENT DATE: 20230522
